FAERS Safety Report 5719483-X (Version None)
Quarter: 2008Q2

REPORT INFORMATION
  Report Type: 
  Country: None (occurrence: None)
  Receive Date: 20080428
  Receipt Date: 20080424
  Transmission Date: 20081010
  Serious: Yes (Other)
  Sender: FDA-Public Use
  Company Number: FR-AVENTIS-200711091FR

PATIENT
  Age: 68 Year
  Sex: Female

DRUGS (2)
  1. LOVENOX [Suspect]
     Route: 058
     Dates: start: 20070313, end: 20070324
  2. ASPIRIN [Concomitant]
     Route: 048
     Dates: start: 20070321

REACTIONS (2)
  - INJECTION SITE HAEMATOMA [None]
  - RETINAL VEIN OCCLUSION [None]
